FAERS Safety Report 4931584-2 (Version None)
Quarter: 2006Q1

REPORT INFORMATION
  Report Type: 
  Country: None (occurrence: None)
  Receive Date: 20060303
  Receipt Date: 20060221
  Transmission Date: 20060701
  Serious: Yes (Other)
  Sender: FDA-Public Use
  Company Number: GB-JNJFOC-20060300401

PATIENT
  Age: 11 Year
  Sex: Male
  Weight: 34 kg

DRUGS (3)
  1. CONCERTA [Suspect]
     Indication: ATTENTION DEFICIT/HYPERACTIVITY DISORDER
     Route: 048
  2. METHYLPHENIDATE HCL [Suspect]
     Route: 048
  3. FISH OIL SUPPLEMENT [Concomitant]

REACTIONS (1)
  - ABNORMAL BEHAVIOUR [None]
